FAERS Safety Report 19050643 (Version 1)
Quarter: 2021Q1

REPORT INFORMATION
  Report Type: Spontaneous
  Country: US (occurrence: US)
  Receive Date: 20210322
  Receipt Date: 20210322
  Transmission Date: 20210420
  Serious: No
  Sender: FDA-Public Use
  Company Number: None

PATIENT
  Age: 62 Year
  Sex: Female
  Weight: 63.9 kg

DRUGS (4)
  1. DEXTROSE SOLUTION [Suspect]
     Active Substance: DEXTROSE
     Indication: END STAGE RENAL DISEASE
     Dosage: ?          OTHER FREQUENCY:3X / WK;?
     Route: 010
     Dates: start: 20210318, end: 20210320
  2. DEXTROSE SOLUTION [Suspect]
     Active Substance: DEXTROSE
     Indication: MALNUTRITION
     Dosage: ?          OTHER FREQUENCY:3X / WK;?
     Route: 010
     Dates: start: 20210318, end: 20210320
  3. DEXTROSE SOLUTION [Suspect]
     Active Substance: DEXTROSE
     Indication: MALNUTRITION
     Dosage: ?          OTHER FREQUENCY:3X/ WK;?
     Route: 010
     Dates: start: 20210318, end: 20210320
  4. DEXTROSE SOLUTION [Suspect]
     Active Substance: DEXTROSE
     Indication: END STAGE RENAL DISEASE
     Dosage: ?          OTHER FREQUENCY:3X/ WK;?
     Route: 010
     Dates: start: 20210318, end: 20210320

REACTIONS (3)
  - Therapy interrupted [None]
  - Hot flush [None]
  - Infusion related reaction [None]

NARRATIVE: CASE EVENT DATE: 20210320
